FAERS Safety Report 17158117 (Version 1)
Quarter: 2019Q4

REPORT INFORMATION
  Report Type: Spontaneous
  Country: US (occurrence: US)
  Receive Date: 20191216
  Receipt Date: 20191216
  Transmission Date: 20200122
  Serious: No
  Sender: FDA-Public Use
  Company Number: US-MYLANLABS-2019M1119917

PATIENT
  Sex: Female
  Weight: 62 kg

DRUGS (2)
  1. VALACYCLOVIR                       /01269701/ [Concomitant]
     Active Substance: VALACYCLOVIR HYDROCHLORIDE
  2. ACYCLOVIR OINTMENT USP, 5% [Suspect]
     Active Substance: ACYCLOVIR
     Indication: ORAL HERPES
     Dosage: UNK UNK, Q3H
     Route: 003
     Dates: start: 20191125, end: 2019

REACTIONS (2)
  - Drug ineffective [Recovered/Resolved]
  - Dysgeusia [Recovered/Resolved]

NARRATIVE: CASE EVENT DATE: 2019
